FAERS Safety Report 4522504-3 (Version None)
Quarter: 2004Q4

REPORT INFORMATION
  Report Type: 
  Country: None (occurrence: None)
  Receive Date: 20041209
  Receipt Date: 20040714
  Transmission Date: 20050328
  Serious: Yes (Other)
  Sender: FDA-Public Use
  Company Number: PHEH2004US07550

PATIENT
  Age: 61 Year
  Sex: Female
  Weight: 92 kg

DRUGS (2)
  1. DIOVAN HCT [Suspect]
     Indication: HYPERTENSION
     Dosage: ONE TABLET DAILY
     Route: 048
     Dates: start: 20040611, end: 20040614
  2. VERAPAMIL [Concomitant]
     Indication: HYPERTENSION

REACTIONS (4)
  - LIP BLISTER [None]
  - ORAL MUCOSAL BLISTERING [None]
  - ORAL PAIN [None]
  - SWOLLEN TONGUE [None]
